FAERS Safety Report 5839520-1 (Version None)
Quarter: 2008Q3

REPORT INFORMATION
  Report Type: 
  Country: None (occurrence: None)
  Receive Date: 20080807
  Receipt Date: 20080801
  Transmission Date: 20090109
  Serious: Yes (Hospitalization)
  Sender: FDA-Public Use
  Company Number: WAES 0807USA04290

PATIENT
  Age: 43 Year
  Sex: Male
  Weight: 138.3471 kg

DRUGS (9)
  1. JANUVIA [Suspect]
     Indication: DIABETES MELLITUS
     Dosage: 100 MG QHS PO
     Route: 048
     Dates: start: 20071109
  2. METFORMIN HCL [Suspect]
     Indication: DIABETES MELLITUS
     Dosage: 1000 MG BID PO
     Route: 048
     Dates: start: 20020101
  3. ACTOS [Suspect]
     Indication: DIABETES MELLITUS
     Dosage: 45 MG DAILY PO
     Route: 048
     Dates: start: 20060101
  4. LANTUS [Suspect]
     Indication: DIABETES MELLITUS
     Dosage: 20 UNITS QHS SC
     Route: 058
     Dates: start: 20071109
  5. AMARYL [Suspect]
     Indication: DIABETES MELLITUS
     Dosage: 4 MG BID PO
     Route: 048
     Dates: start: 20070921
  6. CIALIS [Concomitant]
  7. CYMBALTA [Concomitant]
  8. FLEXERIL [Concomitant]
  9. VYTORIN [Concomitant]

REACTIONS (1)
  - APPENDICITIS [None]
